FAERS Safety Report 14689963 (Version 1)
Quarter: 2018Q1

REPORT INFORMATION
  Report Type: Spontaneous
  Country: US (occurrence: US)
  Receive Date: 20180328
  Receipt Date: 20180328
  Transmission Date: 20180509
  Serious: No
  Sender: FDA-Public Use
  Company Number: US-009507513-1803USA003192

PATIENT
  Age: 82 Year
  Sex: Female

DRUGS (1)
  1. DULERA [Suspect]
     Active Substance: FORMOTEROL FUMARATE DIHYDRATE\MOMETASONE FUROATE
     Indication: ASTHMA
     Dosage: 2 PUFFS BY MOUTH 2 TIMES A DAY
     Route: 055
     Dates: start: 20180129, end: 201802

REACTIONS (2)
  - Aphonia [Unknown]
  - Throat irritation [Unknown]

NARRATIVE: CASE EVENT DATE: 201802
